FAERS Safety Report 14107464 (Version 1)
Quarter: 2017Q4

REPORT INFORMATION
  Report Type: Spontaneous
  Country: US (occurrence: None)
  Receive Date: 20171019
  Receipt Date: 20171019
  Transmission Date: 20180321
  Serious: Yes (Life-Threatening, Hospitalization)
  Sender: FDA-Public Use
  Company Number: None

PATIENT
  Age: 83 Year
  Sex: Male
  Weight: 90.26 kg

DRUGS (1)
  1. ENOXAPARIN [Suspect]
     Active Substance: ENOXAPARIN
     Indication: DEEP VEIN THROMBOSIS
     Route: 058
     Dates: start: 20160928, end: 20170612

REACTIONS (6)
  - Haemorrhage [None]
  - Sepsis [None]
  - Cellulitis [None]
  - Haematoma [None]
  - Fall [None]
  - Diabetic metabolic decompensation [None]

NARRATIVE: CASE EVENT DATE: 20170612
